FAERS Safety Report 14217249 (Version 1)
Quarter: 2017Q4

REPORT INFORMATION
  Report Type: Spontaneous
  Country: FR (occurrence: FR)
  Receive Date: 20171123
  Receipt Date: 20171123
  Transmission Date: 20180321
  Serious: Yes (Disabling)
  Sender: FDA-Public Use
  Company Number: FR-009507513-1711FRA006995

PATIENT
  Age: 25 Year
  Sex: Male

DRUGS (1)
  1. PROPECIA [Suspect]
     Active Substance: FINASTERIDE
     Indication: ALOPECIA
     Dosage: UNK
     Route: 048
     Dates: start: 201003, end: 2010

REACTIONS (11)
  - General physical health deterioration [Unknown]
  - Psychiatric symptom [Unknown]
  - Sexual dysfunction [Unknown]
  - Dyspareunia [Unknown]
  - Memory impairment [Unknown]
  - Reading disorder [Unknown]
  - Mental disorder [Unknown]
  - Gait disturbance [Unknown]
  - Impaired work ability [Unknown]
  - Disturbance in attention [Unknown]
  - Anxiety [Unknown]

NARRATIVE: CASE EVENT DATE: 2010
